FAERS Safety Report 21771267 (Version 1)
Quarter: 2022Q4

REPORT INFORMATION
  Report Type: Spontaneous
  Country: GR (occurrence: GR)
  Receive Date: 20221223
  Receipt Date: 20221223
  Transmission Date: 20230113
  Serious: Yes (Death, Other)
  Sender: FDA-Public Use
  Company Number: GR-AMICUS THERAPEUTICS, INC.-AMI_2158

PATIENT
  Age: 75 Year
  Sex: Female

DRUGS (1)
  1. GALAFOLD [Suspect]
     Active Substance: MIGALASTAT HYDROCHLORIDE
     Indication: Fabry^s disease
     Dosage: UNK
     Route: 048

REACTIONS (1)
  - Choking [Fatal]

NARRATIVE: CASE EVENT DATE: 20221215
